FAERS Safety Report 7984144-3 (Version None)
Quarter: 2011Q4

REPORT INFORMATION
  Report Type: 
  Country: None (occurrence: None)
  Receive Date: 20111216
  Receipt Date: 20111208
  Transmission Date: 20120403
  Serious: Yes (Other)
  Sender: FDA-Public Use
  Company Number: BR-PFIZER INC-2011302353

PATIENT
  Age: 54 Year
  Sex: Male
  Weight: 98.5 kg

DRUGS (22)
  1. VILDAGLIPTIN [Concomitant]
     Indication: DIABETES MELLITUS
     Dosage: 50 MG, 2X/DAY, EVERY 12 HOURS
     Route: 048
  2. INDAPAMIDE [Concomitant]
     Indication: DIURETIC THERAPY
     Dosage: 1.5 MG, 1X/DAY
     Route: 048
  3. KETOCONAZOLE [Concomitant]
     Indication: ANTIFUNGAL TREATMENT
     Dosage: 200 MG, 4X/DAY
     Route: 048
     Dates: start: 20110501, end: 20110510
  4. TRAMADOL [Concomitant]
     Indication: ANALGESIC THERAPY
     Dosage: 50 MG, 1X/DAY
     Route: 048
     Dates: start: 20110610, end: 20110710
  5. SUTENT [Suspect]
     Indication: RENAL CANCER
     Dosage: 50 MG, CYCLIC, FOR 28 DAYS
     Route: 048
     Dates: start: 20101224, end: 20110121
  6. SUTENT [Suspect]
     Dosage: 50 MG, CYCLIC
     Route: 048
     Dates: end: 20111014
  7. ALLOPURINOL [Concomitant]
     Dosage: 100 MG (EVERY 12 HOURS), 2X/DAY
     Route: 048
     Dates: start: 20110721, end: 20110821
  8. SUTENT [Suspect]
     Dosage: 50 MG A DAY, CYCLIC, FOR 28 DAYS
     Route: 048
     Dates: start: 20110610, end: 20110707
  9. TRAMADOL [Concomitant]
     Dosage: 50 MG, 4X/DAY
     Route: 048
     Dates: start: 20110922
  10. SUTENT [Suspect]
     Dosage: 50 MG A DAY, CYCLIC, FOR 28 DAYS
     Route: 048
     Dates: start: 20110218, end: 20110317
  11. SUTENT [Suspect]
     Dosage: 50 MG A DAY, CYCLIC, FOR 28 DAYS
     Route: 048
     Dates: start: 20110721, end: 20110817
  12. VALSARTAN [Concomitant]
     Indication: HYPERTENSION
     Dosage: 320 MG, 1X/DAY
     Route: 048
  13. ALBENDAZOLE [Concomitant]
     Indication: INFECTION PARASITIC
     Dosage: 200 MG, 1X/DAY
     Route: 048
     Dates: start: 20101224, end: 20101226
  14. ACETAMINOPHEN AND CODEINE PHOSPHATE [Concomitant]
     Indication: ANALGESIC THERAPY
     Dosage: UNK
     Route: 048
     Dates: start: 20110128, end: 20110501
  15. ALLOPURINOL [Concomitant]
     Dosage: 100 MG IN THE MORNING, 1X/DAY
     Route: 048
     Dates: start: 20110610, end: 20110710
  16. SUTENT [Suspect]
     Dosage: 50 MG A DAY, CYCLIC, FOR 28 DAYS
     Route: 048
     Dates: start: 20110401, end: 20110429
  17. ACETAMINOPHEN AND CODEINE PHOSPHATE [Concomitant]
     Dosage: UNK
     Route: 048
     Dates: start: 20110610, end: 20110711
  18. ALBENDAZOLE [Concomitant]
     Dosage: 200 MG, 1X/DAY
     Route: 048
     Dates: start: 20110401, end: 20110403
  19. GLICLAZIDE [Concomitant]
     Indication: HYPERGLYCAEMIA
     Dosage: 60 MG, 1X/DAY, IN THE MORNING
     Route: 048
  20. ALLOPURINOL [Concomitant]
     Indication: HYPERURICAEMIA
     Dosage: 100 MG IN THE MORNING, 1X/DAY
     Route: 048
     Dates: start: 20110128, end: 20110228
  21. IVERMECTIN [Concomitant]
     Indication: INFECTION PARASITIC
     Dosage: 12 MG, 1X/DAY
     Route: 048
     Dates: start: 20110401, end: 20110401
  22. ALLOPURINOL [Concomitant]
     Dosage: 100 MG IN THE MORNING, 1X/DAY
     Route: 048
     Dates: start: 20110318, end: 20110501

REACTIONS (5)
  - PALMAR-PLANTAR ERYTHRODYSAESTHESIA SYNDROME [None]
  - BONE DISORDER [None]
  - DIARRHOEA [None]
  - DYSGEUSIA [None]
  - SCOTOMA [None]
